FAERS Safety Report 10150240 (Version 2)
Quarter: 2014Q3

REPORT INFORMATION
  Report Type: Spontaneous
  Country: US (occurrence: US)
  Receive Date: 20140502
  Receipt Date: 20140808
  Transmission Date: 20150326
  Serious: No
  Sender: FDA-Public Use
  Company Number: US-GILEAD-2014-0101400

PATIENT
  Age: 57 Year
  Sex: Male

DRUGS (2)
  1. LETAIRIS [Suspect]
     Active Substance: AMBRISENTAN
     Indication: PRODUCT USED FOR UNKNOWN INDICATION
     Dosage: 5 MG, QD
     Route: 065
     Dates: start: 20130904
  2. ADCIRCA [Concomitant]
     Active Substance: TADALAFIL

REACTIONS (7)
  - Dizziness [Unknown]
  - Vision blurred [Unknown]
  - Hypoaesthesia [Unknown]
  - Chest pain [Unknown]
  - Syncope [Unknown]
  - Condition aggravated [Unknown]
  - Atrioventricular block [Unknown]

NARRATIVE: CASE EVENT DATE: 201404
